FAERS Safety Report 6171863-7 (Version None)
Quarter: 2009Q2

REPORT INFORMATION
  Report Type: 
  Country: None (occurrence: None)
  Receive Date: 20090424
  Receipt Date: 20090202
  Transmission Date: 20091009
  Serious: No
  Sender: FDA-Public Use
  Company Number: ALL1-2009-00259

PATIENT
  Age: 7 Year
  Sex: Female
  Weight: 22.7 kg

DRUGS (2)
  1. ADDERALL 10 [Suspect]
     Indication: ATTENTION DEFICIT/HYPERACTIVITY DISORDER
     Dosage: 5 MG, 1X/DAY:QD, ORAL ; 10 MG, 1X/DAY:QD, ORAL
     Route: 048
     Dates: start: 20090101, end: 20090101
  2. VYVANSE [Suspect]
     Indication: ATTENTION DEFICIT/HYPERACTIVITY DISORDER
     Dosage: 1X/DAY:QD, ORAL
     Route: 048
     Dates: start: 20090101

REACTIONS (3)
  - EMOTIONAL DISORDER [None]
  - EXFOLIATIVE RASH [None]
  - IRRITABILITY [None]
